FAERS Safety Report 15496701 (Version 1)
Quarter: 2018Q4

REPORT INFORMATION
  Report Type: Spontaneous
  Country: US (occurrence: US)
  Receive Date: 20181014
  Receipt Date: 20181014
  Transmission Date: 20190205
  Serious: Yes (Other)
  Sender: FDA-Public Use
  Company Number: US-PRINSTON PHARMACEUTICAL INC.-2018PRN01462

PATIENT
  Age: 19 Year
  Sex: Male

DRUGS (1)
  1. RISPERIDONE. [Suspect]
     Active Substance: RISPERIDONE

REACTIONS (6)
  - Intentional self-injury [Unknown]
  - Skin laceration [Unknown]
  - Skin injury [Unknown]
  - Insomnia [Unknown]
  - Face injury [Unknown]
  - Depression [Unknown]
